FAERS Safety Report 7604169-7 (Version None)
Quarter: 2011Q2

REPORT INFORMATION
  Report Type: 
  Country: None (occurrence: None)
  Receive Date: 20110630
  Receipt Date: 20110616
  Transmission Date: 20111010
  Serious: Yes (Other)
  Sender: FDA-Public Use
  Company Number: 2011AP001238

PATIENT
  Age: 41 Year
  Sex: Male

DRUGS (6)
  1. SULPIRIDE (SULPIRIDE) [Suspect]
     Indication: AFFECTIVE DISORDER
     Dosage: 600 MG ;PO
     Route: 048
     Dates: start: 20070401
  2. SERTRALINE HYDROCHLORIDE [Suspect]
     Indication: DEPRESSED MOOD
     Dosage: 150 MG;PO
     Route: 048
     Dates: start: 20070401
  3. CLOZARIL [Suspect]
     Indication: SCHIZOPHRENIA
     Dosage: 600 MG;PO 600 MG;PO
     Route: 048
     Dates: start: 19950824
  4. CLOZARIL [Suspect]
     Indication: SCHIZOPHRENIA
     Dosage: 600 MG;PO 600 MG;PO
     Route: 048
     Dates: start: 20070401
  5. LITHIUM CARBONATE [Concomitant]
  6. MULTIVITAMIN [Concomitant]

REACTIONS (4)
  - HEADACHE [None]
  - VISUAL IMPAIRMENT [None]
  - LOSS OF CONSCIOUSNESS [None]
  - FALL [None]
